FAERS Safety Report 25103802 (Version 1)
Quarter: 2025Q1

REPORT INFORMATION
  Report Type: Report from Study
  Country: CA (occurrence: CA)
  Receive Date: 20250321
  Receipt Date: 20250321
  Transmission Date: 20250409
  Serious: Yes (Death, Other)
  Sender: CSL BEHRING
  Company Number: CA-BEH-2025199748

PATIENT
  Age: 95 Year
  Sex: Female
  Weight: 80 kg

DRUGS (13)
  1. HIZENTRA [Suspect]
     Active Substance: HUMAN IMMUNOGLOBULIN G
     Indication: Primary immunodeficiency syndrome
     Dosage: (PRODUCT STRENGHT 5G), QW
     Route: 058
     Dates: start: 20180207
  2. PREDNISONE [Concomitant]
     Active Substance: PREDNISONE
  3. AZITHROMYCIN [Concomitant]
     Active Substance: AZITHROMYCIN
  4. GLYCOPYRRONIUM\INDACATEROL [Concomitant]
     Active Substance: GLYCOPYRRONIUM\INDACATEROL
  5. VENTOLIN [Concomitant]
     Active Substance: ALBUTEROL SULFATE
  6. COLACE [Concomitant]
     Active Substance: DOCUSATE SODIUM
  7. PANTOPRAZOLE SODIUM [Concomitant]
     Active Substance: PANTOPRAZOLE SODIUM
  8. CITALOPRAM [Concomitant]
     Active Substance: CITALOPRAM
  9. MAGNESIUM [Concomitant]
     Active Substance: MAGNESIUM
  10. ATIVAN [Concomitant]
     Active Substance: LORAZEPAM
  11. SYNTHROID [Concomitant]
     Active Substance: LEVOTHYROXINE SODIUM
  12. POLYETHYLENE GLYCOL 3350 [Concomitant]
     Active Substance: POLYETHYLENE GLYCOL 3350
  13. ROSUVASTATIN [Suspect]
     Active Substance: ROSUVASTATIN

REACTIONS (1)
  - Death [Fatal]
